FAERS Safety Report 7095655-X (Version None)
Quarter: 2010Q4

REPORT INFORMATION
  Report Type: 
  Country: None (occurrence: None)
  Receive Date: 20101111
  Receipt Date: 20101028
  Transmission Date: 20110411
  Serious: Yes (Hospitalization, Other)
  Sender: FDA-Public Use
  Company Number: PHHY2009CA29284

PATIENT
  Sex: Male

DRUGS (9)
  1. EXJADE [Suspect]
     Indication: MYELODYSPLASTIC SYNDROME
     Dosage: 750 MG, QD
     Route: 048
     Dates: start: 20090401
  2. EXJADE [Suspect]
     Dosage: UNK
     Route: 048
     Dates: start: 20090713
  3. EXJADE [Suspect]
     Dosage: 875 MG, QD
     Route: 048
  4. EXJADE [Suspect]
     Dosage: 1250 MG, QD
     Route: 048
  5. DOMPERIDONE [Concomitant]
     Dosage: 10 MG, UNK
     Route: 048
  6. LANTUS [Concomitant]
     Dosage: 24-26 UNITS QD
  7. GLYBURIDE [Concomitant]
     Dosage: 10 MG, BID
     Route: 048
  8. CLOXACILLIN [Concomitant]
     Indication: INFECTION
     Dosage: 12 GRAM
  9. INSULIN [Concomitant]

REACTIONS (9)
  - CYSTITIS [None]
  - DECREASED APPETITE [None]
  - INFECTION [None]
  - RENAL DISORDER [None]
  - SEPSIS [None]
  - SERUM FERRITIN INCREASED [None]
  - SURGERY [None]
  - THERAPEUTIC RESPONSE DECREASED [None]
  - VOMITING [None]
